FAERS Safety Report 8983868 (Version 1)
Quarter: 2012Q4

REPORT INFORMATION
  Report Type: 
  Country: GB (occurrence: GB)
  Receive Date: 20121224
  Receipt Date: 20121224
  Transmission Date: 20130627
  Serious: Yes (Disabling)
  Sender: FDA-Public Use
  Company Number: GB-ROCHE-1172711

PATIENT
  Age: 21 Year
  Sex: Male
  Weight: 80 kg

DRUGS (1)
  1. ROACCUTANE [Suspect]
     Indication: ACNE
     Route: 048
     Dates: start: 20060401, end: 20070401

REACTIONS (3)
  - Depression [Not Recovered/Not Resolved]
  - Flat affect [Not Recovered/Not Resolved]
  - Mood swings [Not Recovered/Not Resolved]
